FAERS Safety Report 7802906-X (Version None)
Quarter: 2011Q4

REPORT INFORMATION
  Report Type: 
  Country: None (occurrence: None)
  Receive Date: 20111007
  Receipt Date: 20111004
  Transmission Date: 20120403
  Serious: No
  Sender: FDA-Public Use
  Company Number: US-PFIZER INC-2011220213

PATIENT
  Sex: Female
  Weight: 51 kg

DRUGS (4)
  1. LOVAZA [Concomitant]
     Dosage: UNK
  2. PREMARIN [Concomitant]
     Dosage: UNK
  3. LORTAB [Concomitant]
     Dosage: UNK
  4. CELEBREX [Suspect]
     Indication: ARTHRITIS
     Dosage: 100 MG, 2X/DAY
     Route: 048
     Dates: start: 20110614

REACTIONS (1)
  - HAIR COLOUR CHANGES [None]
